FAERS Safety Report 12968252 (Version 2)
Quarter: 2017Q1

REPORT INFORMATION
  Report Type: Other
  Country: US (occurrence: US)
  Receive Date: 20161123
  Receipt Date: 20170201
  Transmission Date: 20170428
  Serious: Yes (Hospitalization, Other)
  Sender: FDA-Public Use
  Company Number: US-ACORDA-ACO_130696_2016

PATIENT
  Age: 57 Year
  Sex: Male

DRUGS (1)
  1. AMPYRA [Suspect]
     Active Substance: DALFAMPRIDINE
     Indication: PRODUCT USED FOR UNKNOWN INDICATION
     Dosage: UNK
     Route: 065

REACTIONS (5)
  - Cognitive disorder [Unknown]
  - Fall [Unknown]
  - Multiple sclerosis relapse [Unknown]
  - Cerebrovascular accident [Unknown]
  - Humerus fracture [Unknown]

NARRATIVE: CASE EVENT DATE: 201604
